FAERS Safety Report 11518762 (Version 2)
Quarter: 2016Q1

REPORT INFORMATION
  Report Type: Spontaneous
  Country: US (occurrence: US)
  Receive Date: 20150917
  Receipt Date: 20160317
  Transmission Date: 20160525
  Serious: Yes (Other)
  Sender: FDA-Public Use
  Company Number: US-TEVA-594853USA

PATIENT
  Age: 9 Year
  Sex: Male

DRUGS (5)
  1. LEVETIRACETAM. [Suspect]
     Active Substance: LEVETIRACETAM
     Indication: PSYCHOTHERAPY
     Route: 065
  2. SERTRALINE [Suspect]
     Active Substance: SERTRALINE HYDROCHLORIDE
     Indication: PSYCHOTHERAPY
     Dosage: TWICE PREVIOUS DOSE
  3. GUANFACINE. [Suspect]
     Active Substance: GUANFACINE
     Indication: PSYCHOTHERAPY
     Route: 065
  4. ARIPIPRAZOLE. [Suspect]
     Active Substance: ARIPIPRAZOLE
     Indication: PSYCHOTHERAPY
     Route: 065
  5. SERTRALINE [Suspect]
     Active Substance: SERTRALINE HYDROCHLORIDE
     Indication: PSYCHOTHERAPY
     Route: 065

REACTIONS (1)
  - Priapism [Recovering/Resolving]
